FAERS Safety Report 8926070 (Version 3)
Quarter: 2013Q1

REPORT INFORMATION
  Report Type: Spontaneous
  Country: IT (occurrence: IT)
  Receive Date: 20121126
  Receipt Date: 20130215
  Transmission Date: 20140127
  Serious: Yes (Hospitalization)
  Sender: FDA-Public Use
  Company Number: IT-JNJFOC-20121007033

PATIENT
  Age: 22 Year
  Sex: Female

DRUGS (2)
  1. SERENASE [Suspect]
     Indication: DRUG ABUSE
     Route: 048
     Dates: start: 20120706, end: 20120706
  2. CITALOPRAM [Suspect]
     Indication: DRUG ABUSE
     Route: 048
     Dates: start: 20120706, end: 20120706

REACTIONS (6)
  - Poisoning [Recovered/Resolved]
  - Self injurious behaviour [Recovering/Resolving]
  - Overdose [Recovering/Resolving]
  - Myoclonus [Recovering/Resolving]
  - Oropharyngeal spasm [Recovering/Resolving]
  - Dyslexia [Recovering/Resolving]
